FAERS Safety Report 5724416-6 (Version None)
Quarter: 2008Q2

REPORT INFORMATION
  Report Type: 
  Country: None (occurrence: None)
  Receive Date: 20080430
  Receipt Date: 20080422
  Transmission Date: 20081010
  Serious: Yes (Hospitalization)
  Sender: FDA-Public Use
  Company Number: FR-PFIZER INC-2008035477

PATIENT
  Age: 70 Year
  Sex: Female

DRUGS (6)
  1. AROMASIN [Suspect]
     Indication: BREAST CANCER
     Route: 048
     Dates: start: 20071227, end: 20080111
  2. ZOLPIDEM TARTRATE [Concomitant]
     Route: 048
  3. OXAZEPAM [Concomitant]
     Route: 048
  4. AMISULPRIDE [Concomitant]
     Route: 048
  5. PAROXETINE HCL [Concomitant]
     Route: 048
  6. TROPATEPINE HYDROCHLORIDE [Concomitant]
     Route: 048

REACTIONS (1)
  - ACUTE GENERALISED EXANTHEMATOUS PUSTULOSIS [None]
